FAERS Safety Report 20033531 (Version 2)
Quarter: 2022Q2

REPORT INFORMATION
  Report Type: Spontaneous
  Country: US (occurrence: US)
  Receive Date: 20211104
  Receipt Date: 20220613
  Transmission Date: 20220720
  Serious: Yes (Other)
  Sender: FDA-Public Use
  Company Number: US-BAYER-2021A239757

PATIENT

DRUGS (2)
  1. ASPIRIN [Suspect]
     Active Substance: ASPIRIN
     Indication: Angina pectoris
     Dosage: 1 DF, QD
     Route: 065
  2. ASPIRIN [Suspect]
     Active Substance: ASPIRIN
     Indication: Angina pectoris
     Dosage: UNK, ONCE EVERY 4 DAYS

REACTIONS (5)
  - Haemorrhagic diathesis [Unknown]
  - Dry skin [Unknown]
  - Haemorrhage subcutaneous [None]
  - Increased tendency to bruise [None]
  - Product use in unapproved indication [None]
